FAERS Safety Report 14984209 (Version 3)
Quarter: 2019Q1

REPORT INFORMATION
  Report Type: Report from Study
  Country: FR (occurrence: FR)
  Receive Date: 20180607
  Receipt Date: 20190125
  Transmission Date: 20190417
  Serious: Yes (Death, Other)
  Sender: FDA-Public Use
  Company Number: FR-JAZZ-2017-FR-015315

PATIENT

DRUGS (4)
  1. PENTACARINAT [Concomitant]
     Active Substance: PENTAMIDINE ISETHIONATE
     Indication: INFECTION PROPHYLAXIS
     Dosage: 300 MG, QD
     Dates: start: 2016, end: 20161124
  2. MYCOPHENOLATE MOFETIL. [Concomitant]
     Active Substance: MYCOPHENOLATE MOFETIL
     Indication: PROPHYLAXIS
     Dosage: 1 G, QD
     Route: 048
     Dates: start: 2016, end: 201612
  3. ZELITREX [Concomitant]
     Active Substance: VALACYCLOVIR HYDROCHLORIDE
     Indication: PROPHYLAXIS
     Dosage: 500 MG, QD
     Route: 048
     Dates: start: 20160924, end: 201612
  4. DEFITELIO [Suspect]
     Active Substance: DEFIBROTIDE SODIUM
     Indication: VENOOCCLUSIVE DISEASE
     Dosage: 23.3 MG/KG, QD
     Route: 042
     Dates: start: 20161017, end: 20161023

REACTIONS (8)
  - Gastrointestinal injury [Recovered/Resolved]
  - Melaena [Recovered/Resolved]
  - Cerebral toxoplasmosis [Fatal]
  - Graft versus host disease in skin [Fatal]
  - Septic shock [Fatal]
  - Status epilepticus [Fatal]
  - Coma [Fatal]
  - Oesophagitis [Recovered/Resolved]

NARRATIVE: CASE EVENT DATE: 20161102
